FAERS Safety Report 13077046 (Version 1)
Quarter: 2016Q4

REPORT INFORMATION
  Report Type: Spontaneous
  Country: US (occurrence: US)
  Receive Date: 20161230
  Receipt Date: 20161230
  Transmission Date: 20170207
  Serious: Yes (Hospitalization)
  Sender: FDA-Public Use
  Company Number: US-BIOGEN-2010BI009174

PATIENT
  Age: 22 Year
  Sex: Male
  Weight: 97.61 kg

DRUGS (4)
  1. RISPERDAL [Concomitant]
     Active Substance: RISPERIDONE
     Indication: IMPULSIVE BEHAVIOUR
     Route: 048
  2. CELEXA [Concomitant]
     Active Substance: CITALOPRAM HYDROBROMIDE
     Indication: DEPRESSION
     Route: 050
  3. TYSABRI [Suspect]
     Active Substance: NATALIZUMAB
     Indication: MULTIPLE SCLEROSIS
     Route: 042
     Dates: start: 20061003, end: 20100112
  4. RISPERDAL [Concomitant]
     Active Substance: RISPERIDONE
     Indication: PARANOIA

REACTIONS (7)
  - Pulmonary oedema [Recovered/Resolved]
  - Pneumonia aspiration [Recovered/Resolved]
  - Alcoholism [Unknown]
  - Clostridium difficile colitis [Not Recovered/Not Resolved]
  - Progressive multifocal leukoencephalopathy [Not Recovered/Not Resolved]
  - HIV test positive [Unknown]
  - Immune reconstitution inflammatory syndrome [Recovered/Resolved]

NARRATIVE: CASE EVENT DATE: 200906
